FAERS Safety Report 8500477 (Version 4)
Quarter: 2015Q1

REPORT INFORMATION
  Report Type: Spontaneous
  Country: US (occurrence: US)
  Receive Date: 20120409
  Receipt Date: 20150320
  Transmission Date: 20150721
  Serious: Yes (Life-Threatening, Hospitalization, Congenital Anomaly, Other)
  Sender: FDA-Public Use
  Company Number: US-PFIZER INC-2012068268

PATIENT
  Sex: Female
  Weight: 3.2 kg

DRUGS (9)
  1. ZOLOFT [Suspect]
     Active Substance: SERTRALINE HYDROCHLORIDE
     Dosage: 100 MG, UNK
     Route: 064
     Dates: start: 2008, end: 2008
  2. PROTONIX [Concomitant]
     Active Substance: PANTOPRAZOLE SODIUM
     Indication: GASTROOESOPHAGEAL REFLUX DISEASE
     Dosage: 40 MG, 1X/DAY
     Route: 064
     Dates: start: 20090218
  3. SERTRALINE HCL [Suspect]
     Active Substance: SERTRALINE HYDROCHLORIDE
     Dosage: UNK
     Route: 064
     Dates: start: 200410, end: 2014
  4. ZOLOFT [Suspect]
     Active Substance: SERTRALINE HYDROCHLORIDE
     Dosage: 50 MG, 1X/DAY
     Route: 064
     Dates: start: 20100822
  5. ZOLOFT [Suspect]
     Active Substance: SERTRALINE HYDROCHLORIDE
     Indication: DEPRESSION
     Dosage: UNK
     Route: 064
     Dates: start: 200410, end: 2014
  6. ZOLOFT [Suspect]
     Active Substance: SERTRALINE HYDROCHLORIDE
     Dosage: 50 MG, UNK
     Route: 064
     Dates: start: 2008, end: 20090224
  7. ZOLOFT [Suspect]
     Active Substance: SERTRALINE HYDROCHLORIDE
     Dosage: 100 MG, UNK
     Route: 064
     Dates: start: 20090225, end: 2010
  8. METRONIDAZOLE. [Concomitant]
     Active Substance: METRONIDAZOLE
     Dosage: 500 MG, 2X/DAY
     Route: 064
     Dates: start: 20100823
  9. PRENATAL VITAMINS [Concomitant]
     Active Substance: VITAMINS
     Dosage: ONE TABLET
     Route: 064
     Dates: start: 20091030

REACTIONS (11)
  - Atrial septal defect [Unknown]
  - Maternal exposure timing unspecified [Unknown]
  - Congenital aortic stenosis [Unknown]
  - Cyanosis neonatal [Unknown]
  - Transposition of the great vessels [Unknown]
  - Tricuspid valve incompetence [Recovered/Resolved]
  - Metabolic acidosis [Unknown]
  - Congenital coronary artery malformation [Unknown]
  - Patent ductus arteriosus [Unknown]
  - Respiratory distress [Unknown]
  - Cardiomegaly [Unknown]

NARRATIVE: CASE EVENT DATE: 20100908
